FAERS Safety Report 4274694-8 (Version None)
Quarter: 2004Q1

REPORT INFORMATION
  Report Type: 
  Country: None (occurrence: None)
  Receive Date: 20040120
  Receipt Date: 20031024
  Transmission Date: 20041129
  Serious: Yes (Death)
  Sender: FDA-Public Use
  Company Number: PHBS2003JP11875

PATIENT
  Age: 77 Year
  Sex: Male

DRUGS (8)
  1. ATGAM [Concomitant]
     Dates: start: 20030924
  2. NEORAL [Suspect]
     Indication: APLASTIC ANAEMIA
     Dosage: 300 MG/DAY
     Route: 048
     Dates: start: 20030829, end: 20031019
  3. CEFOTIAM HYDROCHLORIDE [Concomitant]
     Route: 042
  4. MINOMYCIN [Concomitant]
     Route: 042
  5. GRAN [Concomitant]
     Dosage: 300 UG/D
     Route: 042
  6. CEFOZOPRAN HYDROCHLORIDE [Concomitant]
  7. BIAPENEM [Concomitant]
  8. FLUCONAZOLE [Concomitant]

REACTIONS (2)
  - PNEUMONIA ASPERGILLUS [None]
  - THERAPY NON-RESPONDER [None]
